FAERS Safety Report 23719459 (Version 1)
Quarter: 2024Q2

REPORT INFORMATION
  Report Type: Spontaneous
  Country: ES (occurrence: ES)
  Receive Date: 20240408
  Receipt Date: 20240408
  Transmission Date: 20240716
  Serious: Yes (Life-Threatening, Hospitalization, Other)
  Sender: FDA-Public Use
  Company Number: None

PATIENT
  Age: 62 Year
  Sex: Male

DRUGS (8)
  1. LEVOFLOXACIN [Suspect]
     Active Substance: LEVOFLOXACIN
     Indication: Respiratory tract infection
     Dosage: 500 MG, QD; LEVOFLOXACIN (2791A)
     Route: 042
     Dates: start: 20190205, end: 20190211
  2. HYDRALAZINE [Suspect]
     Active Substance: HYDRALAZINE HYDROCHLORIDE
     Indication: Product used for unknown indication
     Route: 048
     Dates: start: 20190210, end: 20190211
  3. HYDRALAZINE [Suspect]
     Active Substance: HYDRALAZINE HYDROCHLORIDE
     Indication: Product used for unknown indication
     Dosage: HYDRALAZINE HYDROCHLORIDE (1720CH)
     Route: 048
     Dates: start: 20190208, end: 20190210
  4. SULFAMETHOXAZOLE\TRIMETHOPRIM [Suspect]
     Active Substance: SULFAMETHOXAZOLE\TRIMETHOPRIM
     Indication: Product used for unknown indication
     Dosage: 1 DF, Q12H; SOLTRIM 160MG/ 800MG POWDER AND SOLUTION FOR INJECTABLE SOLUTION, 5 VIALS + 5 AMPOULES
     Route: 042
     Dates: start: 20190131, end: 20190205
  5. HYDRALAZINE [Concomitant]
     Active Substance: HYDRALAZINE HYDROCHLORIDE
     Indication: Product used for unknown indication
     Dosage: HYDRALAZINE HYDROCHLORIDE (1720CH)
     Route: 048
     Dates: start: 20190208, end: 20190210
  6. DAPTOMYCIN [Suspect]
     Active Substance: DAPTOMYCIN
     Indication: Respiratory tract infection
     Dosage: 700 MG, QD; DAPTOMICIN (7068A)
     Route: 042
     Dates: start: 20190208, end: 20190211
  7. PANTOPRAZOLE [Concomitant]
     Active Substance: PANTOPRAZOLE
     Indication: Product used for unknown indication
     Dosage: 40 MG, QD; PANTOPRAZOLE (7275A)
     Route: 042
     Dates: start: 20190204, end: 20190218
  8. METOCLOPRAMIDE HYDROCHLORIDE [Concomitant]
     Active Substance: METOCLOPRAMIDE HYDROCHLORIDE
     Indication: Product used for unknown indication
     Dosage: 10 MG, Q8H; METOCLOPRAMIDA (1958A)
     Route: 042
     Dates: start: 20190203, end: 20190218

REACTIONS (1)
  - Agranulocytosis [Recovered/Resolved]

NARRATIVE: CASE EVENT DATE: 20190211
